FAERS Safety Report 7248812-3 (Version None)
Quarter: 2011Q1

REPORT INFORMATION
  Report Type: 
  Country: None (occurrence: None)
  Receive Date: 20110121
  Receipt Date: 20110121
  Transmission Date: 20110831
  Serious: Yes (Hospitalization)
  Sender: FDA-Public Use
  Company Number: None

PATIENT
  Sex: Female
  Weight: 60.54 kg

DRUGS (7)
  1. ATIVAN [Concomitant]
  2. ERBITUX [Suspect]
     Dosage: 1570 MG
     Dates: end: 20101230
  3. TAXOL [Suspect]
     Dosage: 581 MG
     Dates: end: 20101216
  4. CARBOPLATIN [Suspect]
     Dosage: 1049 MG
     Dates: end: 20101216
  5. PHENERGAN [Concomitant]
  6. DEXAMETHASONE [Concomitant]
  7. NEULASTA [Concomitant]

REACTIONS (9)
  - BLOOD BILIRUBIN INCREASED [None]
  - NAUSEA [None]
  - ASPARTATE AMINOTRANSFERASE INCREASED [None]
  - WHITE BLOOD CELL COUNT ABNORMAL [None]
  - HYPOCALCAEMIA [None]
  - VOMITING [None]
  - ASTHENIA [None]
  - DIARRHOEA [None]
  - MALAISE [None]
